FAERS Safety Report 9529085 (Version 1)
Quarter: 2013Q1

REPORT INFORMATION
  Report Type: Spontaneous
  Country: US (occurrence: None)
  Receive Date: 20130329
  Receipt Date: 20130329
  Transmission Date: 20140127
  Serious: No
  Sender: FDA-Public Use
  Company Number: 1000043025

PATIENT
  Age: 52 Year
  Sex: Female

DRUGS (4)
  1. LINZESS [Suspect]
     Indication: IRRITABLE BOWEL SYNDROME
     Route: 048
     Dates: start: 20130220, end: 20130221
  2. LAMICTAL (LAMOTRIGINE) [Concomitant]
  3. ALPRAZOLAM (ALPRAZOLAM) [Concomitant]
  4. ABILIFY (ARIPIRAZOLE) [Concomitant]

REACTIONS (2)
  - Diarrhoea [None]
  - Faecal incontinence [None]
